FAERS Safety Report 5049432-1 (Version None)
Quarter: 2006Q3

REPORT INFORMATION
  Report Type: 
  Country: None (occurrence: None)
  Receive Date: 20060712
  Receipt Date: 20060428
  Transmission Date: 20061208
  Serious: Yes (Hospitalization)
  Sender: FDA-Public Use
  Company Number: US-ROCHE-446191

PATIENT
  Age: 53 Year
  Sex: Male
  Weight: 96.4 kg

DRUGS (24)
  1. PEG-INTERFERON ALFA 2A (RO 25-8310) [Suspect]
     Indication: HEPATITIS C
     Route: 058
     Dates: start: 20060303
  2. PEG-INTERFERON ALFA 2A (RO 25-8310) [Suspect]
     Route: 058
     Dates: end: 20060427
  3. PEG-INTERFERON ALFA 2A (RO 25-8310) [Suspect]
     Route: 058
     Dates: start: 20060505, end: 20060531
  4. RIBAVIRIN [Suspect]
     Indication: HEPATITIS C
     Route: 048
     Dates: start: 20060303
  5. RIBAVIRIN [Suspect]
     Route: 048
     Dates: end: 20060427
  6. RIBAVIRIN [Suspect]
     Route: 048
     Dates: start: 20060429
  7. LABETALOL HCL [Suspect]
     Indication: HYPERTENSION
     Route: 065
     Dates: start: 20060303, end: 20060428
  8. CALCIUM GLUCONATE [Concomitant]
     Dates: start: 20051118
  9. ASPIRIN [Concomitant]
     Dates: start: 20051118, end: 20060525
  10. BACTRIM [Concomitant]
     Dosage: REPORTED AS '160/WEEK'
     Dates: start: 20051118
  11. VICODIN [Concomitant]
     Dates: start: 20051118
  12. VALCYTE [Concomitant]
     Dates: start: 20051121
  13. TRAMADOL HCL [Concomitant]
     Dates: start: 20051128
  14. MAGNESIUM [Concomitant]
     Dates: start: 20051205
  15. LACTULOSE [Concomitant]
     Dates: start: 20051207
  16. PREDNISONE [Concomitant]
     Dosage: ON 03 JUNE 2006 DOSE WAS INCREASED TO 40 MG/DAY.
     Dates: start: 20051210
  17. ACIPHEX [Concomitant]
     Dates: start: 20051229
  18. NYSTATIN [Concomitant]
     Dates: start: 20060130, end: 20060501
  19. CYCLOSPORINE [Concomitant]
     Dosage: DOSE REDUCED TO 175 MG ON 13 MAY 2006.
     Dates: start: 20060405, end: 20060512
  20. LASIX [Concomitant]
     Dates: start: 20060301
  21. POTASSIUM [Concomitant]
     Dates: start: 20060301
  22. PAXIL [Concomitant]
     Dates: start: 20060412
  23. DESYREL [Concomitant]
     Dates: start: 20060413
  24. CIPRO [Concomitant]
     Dates: start: 20060425, end: 20060430

REACTIONS (5)
  - AUTOIMMUNE HEPATITIS [None]
  - COLD SWEAT [None]
  - DIZZINESS [None]
  - DYSPNOEA [None]
  - ORTHOSTATIC HYPOTENSION [None]
